FAERS Safety Report 9860036 (Version 1)
Quarter: 2014Q1

REPORT INFORMATION
  Report Type: Spontaneous
  Country: NL (occurrence: NL)
  Receive Date: 20140131
  Receipt Date: 20140131
  Transmission Date: 20141002
  Serious: Yes (Other)
  Sender: FDA-Public Use
  Company Number: NL-ASTRAZENECA-2014SE05767

PATIENT
  Age: 85 Year
  Sex: Male

DRUGS (2)
  1. OMEPRAZOLE [Suspect]
     Indication: PROPHYLAXIS AGAINST GASTROINTESTINAL ULCER
  2. ACENOCOUMAROLE [Concomitant]
     Indication: ATRIAL FIBRILLATION

REACTIONS (2)
  - Galactorrhoea [Recovered/Resolved]
  - Gynaecomastia [Recovered/Resolved]
